FAERS Safety Report 10260827 (Version 1)
Quarter: 2014Q2

REPORT INFORMATION
  Report Type: Spontaneous
  Country: US (occurrence: US)
  Receive Date: 20140626
  Receipt Date: 20140626
  Transmission Date: 20141212
  Serious: Yes (Other)
  Sender: FDA-Public Use
  Company Number: US-BRISTOL-MYERS SQUIBB COMPANY-21094107

PATIENT
  Sex: Male

DRUGS (3)
  1. ABILIFY [Suspect]
     Route: 048
  2. ABILIFY MAINTENA INJECTION [Suspect]
     Indication: SCHIZOPHRENIA
     Dosage: 400MG
     Route: 030
     Dates: start: 201404
  3. RISPERDAL CONSTA [Concomitant]

REACTIONS (3)
  - Hallucination [Unknown]
  - Psychiatric symptom [Unknown]
  - Drug administration error [Unknown]
